FAERS Safety Report 6860194-5 (Version None)
Quarter: 2010Q3

REPORT INFORMATION
  Report Type: 
  Country: None (occurrence: None)
  Receive Date: 20100719
  Receipt Date: 20100719
  Transmission Date: 20110219
  Serious: No
  Sender: FDA-Public Use
  Company Number: None

PATIENT
  Age: 61 Year
  Sex: Male
  Weight: 101.2 kg

DRUGS (3)
  1. BACITRACIN ZINC-POLYMYXIN B SULFATE [Suspect]
     Indication: BLEPHARITIS
     Dosage: 1 UNITS TID EYE
     Dates: start: 20100501, end: 20100502
  2. BACITRACIN ZINC-POLYMYXIN B SULFATE [Suspect]
     Indication: EYELID INFECTION
     Dosage: 1 UNITS TID EYE
     Dates: start: 20100501, end: 20100502
  3. BACITRACIN ZINC-POLYMYXIN B SULFATE [Suspect]
     Indication: ROSACEA
     Dosage: 1 UNITS TID EYE
     Dates: start: 20100501, end: 20100502

REACTIONS (2)
  - DRUG HYPERSENSITIVITY [None]
  - EYE PRURITUS [None]
